FAERS Safety Report 7599396-1 (Version None)
Quarter: 2011Q3

REPORT INFORMATION
  Report Type: 
  Country: None (occurrence: None)
  Receive Date: 20110711
  Receipt Date: 20080313
  Transmission Date: 20111222
  Serious: Yes (Death, Other)
  Sender: FDA-Public Use
  Company Number: US-BAYER-200817028NA

PATIENT
  Age: 89 Year
  Sex: Male
  Weight: 77.098 kg

DRUGS (34)
  1. PAVULON [Concomitant]
     Dosage: 15 MG
     Route: 042
     Dates: start: 20051216, end: 20051216
  2. ACETAMINOPHEN [Concomitant]
     Indication: PAIN
     Dosage: 325-650MG EVERY 4-6 HOURS AS NEEDED
     Route: 048
     Dates: start: 19860817, end: 20060202
  3. ACETAMINOPHEN [Concomitant]
     Indication: BODY TEMPERATURE INCREASED
     Dosage: 325-650MG EVERY 4-6 HOURS AS NEEDED
     Route: 054
     Dates: start: 19860817, end: 20060202
  4. EPINEPHRINE [Concomitant]
     Dosage: UNREADABLE
     Route: 042
     Dates: start: 20051216, end: 20051216
  5. VISIPAQUE [Concomitant]
     Indication: CATHETERISATION CARDIAC
     Dosage: 110 ML, UNK
     Dates: start: 20051214
  6. ACETYLSALICYLIC ACID SRT [Concomitant]
     Dosage: 81-600 MG DAILY
     Route: 048
     Dates: start: 19930914, end: 20060223
  7. ACETYLSALICYLIC ACID SRT [Concomitant]
     Dosage: 81-600 MG DAILY
     Route: 054
     Dates: start: 19930914, end: 20060223
  8. MORPHINE [Concomitant]
     Indication: SEDATION
     Dosage: 1-10MG EVERY 1-3 HOURS AS NEEDED
     Route: 030
     Dates: start: 20051213, end: 20060103
  9. NOREPINEPHRINE BITARTRATE [Concomitant]
     Dosage: 4MG/250ML INFUSION AS NEEDED
     Route: 042
     Dates: start: 20051216, end: 20060103
  10. VERSED [Concomitant]
     Dosage: 2 MG
     Route: 042
     Dates: start: 20051216, end: 20051216
  11. CONTRAST MEDIA [Concomitant]
     Indication: CATHETERISATION CARDIAC
     Dosage: UNK
     Dates: start: 20051214
  12. MORPHINE [Concomitant]
     Indication: PAIN
     Dosage: 1-10MG EVERY 1-3 HOURS AS NEEDED
     Route: 042
     Dates: start: 20051213, end: 20060105
  13. ALUMINIUM W/MAGNESIUM/SIMETICONE [Concomitant]
     Dosage: 400/400/40 15-30ML EVERY 4-6 HOURS AS NEEDED
     Route: 048
     Dates: start: 20051215, end: 20060202
  14. ATENOLOL [Concomitant]
     Dosage: 25 MG, UNK
     Route: 048
     Dates: start: 20051216, end: 20051216
  15. PROTAMINE SULFATE [Concomitant]
     Dosage: 10 MG/ML, UNK
     Route: 042
     Dates: start: 20051216, end: 20051216
  16. PROPOFOL [Concomitant]
     Dosage: 10 MG/ML, UNK
     Route: 042
     Dates: start: 20051216, end: 20051216
  17. TRASYLOL [Suspect]
     Indication: CORONARY ARTERY BYPASS
     Dosage: PUMP PRIME 1000 IU AND LOADING DOSE OF 4 MIU
     Dates: start: 20051216, end: 20051216
  18. FUROSEMIDE [Concomitant]
     Indication: FLUID RETENTION
     Dosage: 10-40MG DAILY
     Route: 048
     Dates: start: 20030505, end: 20051217
  19. LORAZEPAM [Concomitant]
     Dosage: 0.5 MG, UNK
     Route: 042
     Dates: start: 20051214
  20. PANTOPRAZOLE [Concomitant]
     Dosage: 40 MG DAILY
     Route: 042
     Dates: start: 20051215
  21. FRESH FROZEN PLASMA [Concomitant]
     Dosage: 2 U, UNK
     Dates: start: 20051216
  22. PLATELETS [Concomitant]
     Dosage: 1 U, UNK
     Dates: start: 20051216
  23. NITROGLYCERIN [Concomitant]
     Dosage: UNREADABLE
     Route: 042
     Dates: start: 20051216, end: 20051216
  24. HEPARIN [Concomitant]
     Dosage: 500-700 UNITIS/HR INFUSION
     Route: 042
     Dates: start: 20051212, end: 20060202
  25. PANTOPRAZOLE [Concomitant]
     Dosage: 40 MG, QD
     Route: 048
     Dates: start: 20051215, end: 20060225
  26. EPINEPHRINE [Concomitant]
     Dosage: 1 MG/ML, PRN
     Route: 042
     Dates: start: 20051216, end: 20060103
  27. LEVOPHED [Concomitant]
     Dosage: UNREADABLE
     Route: 042
     Dates: start: 20051216, end: 20051216
  28. CEFAZOLIN [Concomitant]
     Dosage: 1 G EVERY 8 HOURS
     Route: 042
     Dates: start: 20051216, end: 20051219
  29. GARAMYCIN [Concomitant]
     Dosage: 40-80MG IRRIGATION
     Dates: start: 20051216, end: 20051216
  30. MIDAZOLAM HCL [Concomitant]
     Dosage: 1-5 MG EVERY HOUR AS NEEDED
     Route: 042
     Dates: start: 20051216, end: 20060103
  31. RED BLOOD CELLS [Concomitant]
     Dosage: 1 U, UNK
     Dates: start: 20051216
  32. DARVOCET-N 50 [Concomitant]
     Indication: PAIN
     Dosage: EVERY 2-6 HOURS AS NEEDED
     Route: 048
     Dates: start: 19961227
  33. MEDROL [Concomitant]
     Dosage: UNK
     Dates: start: 20051103
  34. HEPARIN [Concomitant]
     Dosage: 30000 UNITS CELLSAVER
     Dates: start: 20051216, end: 20051216

REACTIONS (6)
  - RENAL FAILURE [None]
  - PAIN [None]
  - INJURY [None]
  - ILL-DEFINED DISORDER [None]
  - ANHEDONIA [None]
  - DEATH [None]
